FAERS Safety Report 25307714 (Version 2)
Quarter: 2025Q4

REPORT INFORMATION
  Report Type: Spontaneous
  Country: US (occurrence: US)
  Receive Date: 20250513
  Receipt Date: 20251029
  Transmission Date: 20260118
  Serious: Yes (Other)
  Sender: INCYTE
  Company Number: US-EVENT-002724

PATIENT
  Age: 51 Year

DRUGS (2)
  1. OPZELURA [Suspect]
     Active Substance: RUXOLITINIB PHOSPHATE
     Indication: Product used for unknown indication
     Dosage: 1.5 PERCENT, BID (APPLY TO AFFECTED AREA(S) EVERY MORNING AND BEFORE BEDTIME AS DIRECTED)
     Route: 065
  2. OPZELURA [Suspect]
     Active Substance: RUXOLITINIB PHOSPHATE
     Dosage: 1.5 PERCENT, BID (APPLY TO AFFECTED AREA(S) EVERY MORNING AND BEFORE BEDTIME AS DIRECTED)
     Route: 065

REACTIONS (3)
  - Syncope [Unknown]
  - Loss of consciousness [Unknown]
  - Stress [Unknown]
